FAERS Safety Report 10754036 (Version 1)
Quarter: 2015Q1

REPORT INFORMATION
  Report Type: Spontaneous
  Country: US (occurrence: US)
  Receive Date: 20150202
  Receipt Date: 20150202
  Transmission Date: 20150721
  Serious: Yes (Other)
  Sender: FDA-Public Use
  Company Number: US-GLENMARK GENERICS INC.-2015GMK013591

PATIENT
  Age: 25 Year
  Sex: Female

DRUGS (1)
  1. LEVETIRACETAM. [Suspect]
     Active Substance: LEVETIRACETAM
     Indication: SEIZURE
     Dosage: 3000 MG, QD, OVER 1 WEEK
     Route: 048

REACTIONS (4)
  - Nausea [Recovered/Resolved]
  - Pancreatitis acute [Recovered/Resolved]
  - Transaminases increased [Recovered/Resolved]
  - Decreased appetite [Recovered/Resolved]
